FAERS Safety Report 24758973 (Version 2)
Quarter: 2024Q4

REPORT INFORMATION
  Report Type: Spontaneous
  Country: US (occurrence: US)
  Receive Date: 20241220
  Receipt Date: 20241226
  Transmission Date: 20250115
  Serious: Yes (Other)
  Sender: SANOFI AVENTIS
  Company Number: US-SA-2024SA374390

PATIENT
  Age: 61 Year
  Sex: Female
  Weight: 94.55 kg

DRUGS (9)
  1. KEVZARA [Suspect]
     Active Substance: SARILUMAB
     Indication: Rheumatoid arthritis
     Dosage: 150 MG, QOW
     Route: 058
  2. ZORYVE [Suspect]
     Active Substance: ROFLUMILAST
     Dosage: UNK
  3. BRILINTA [Concomitant]
     Active Substance: TICAGRELOR
     Dosage: UNK
  4. FLONASE ALLERGY RELIEF [Concomitant]
     Active Substance: FLUTICASONE PROPIONATE
     Dosage: UNK
  5. ASPIRIN [Concomitant]
     Active Substance: ASPIRIN
     Dosage: UNK
  6. METHYLPREDNISOLONE [Concomitant]
     Active Substance: METHYLPREDNISOLONE
     Dosage: UNK
  7. ESTRACE [Concomitant]
     Active Substance: ESTRADIOL
     Dosage: UNK
  8. VALSARTAN [Concomitant]
     Active Substance: VALSARTAN
     Dosage: UNK
  9. VITAMINS NOS [Concomitant]
     Active Substance: VITAMINS
     Dosage: UNK

REACTIONS (7)
  - Rheumatoid arthritis [Recovering/Resolving]
  - Stomatitis [Unknown]
  - Oral mucosal blistering [Unknown]
  - Nasal congestion [Recovered/Resolved]
  - Diarrhoea [Recovered/Resolved]
  - Insomnia [Recovering/Resolving]
  - Hypertension [Unknown]

NARRATIVE: CASE EVENT DATE: 20241029
